FAERS Safety Report 5165375-7 (Version None)
Quarter: 2006Q4

REPORT INFORMATION
  Report Type: 
  Country: None (occurrence: None)
  Receive Date: 20061128
  Receipt Date: 20061115
  Transmission Date: 20070319
  Serious: Yes (Death)
  Sender: FDA-Public Use
  Company Number: 2006127450

PATIENT
  Age: 68 Year
  Sex: Male
  Weight: 66.9 kg

DRUGS (6)
  1. ZYVOX [Suspect]
     Indication: ENTEROCOCCAL INFECTION
     Dosage: 1200 MG (600 MG, 2 IN 1 D), INTRAVENOUS
     Route: 042
     Dates: start: 20060211, end: 20060219
  2. ZYVOX [Suspect]
     Indication: PATHOGEN RESISTANCE
     Dosage: 1200 MG (600 MG, 2 IN 1 D), INTRAVENOUS
     Route: 042
     Dates: start: 20060211, end: 20060219
  3. MEROPEN (MEROPENEM) [Concomitant]
  4. CIMETIDINE [Concomitant]
  5. TYLENOL [Concomitant]
  6. NAPROXEN [Concomitant]

REACTIONS (3)
  - LYMPHOMA [None]
  - NEUTROPENIA [None]
  - SEPTIC SHOCK [None]
